FAERS Safety Report 7630509-9 (Version None)
Quarter: 2011Q3

REPORT INFORMATION
  Report Type: 
  Country: None (occurrence: None)
  Receive Date: 20110722
  Receipt Date: 20110708
  Transmission Date: 20111222
  Serious: Yes (Other)
  Sender: FDA-Public Use
  Company Number: GB-WATSON-2011-10538

PATIENT
  Age: 24 Year
  Sex: Female

DRUGS (1)
  1. TACROLIMUS [Suspect]
     Indication: HEART TRANSPLANT

REACTIONS (2)
  - SUBCUTANEOUS NODULE [None]
  - EXTRANODAL MARGINAL ZONE B-CELL LYMPHOMA (MALT TYPE) [None]
